FAERS Safety Report 12833083 (Version 1)
Quarter: 2016Q4

REPORT INFORMATION
  Report Type: Spontaneous
  Country: GB (occurrence: GB)
  Receive Date: 20161010
  Receipt Date: 20161010
  Transmission Date: 20170207
  Serious: Yes (Disabling, Other)
  Sender: FDA-Public Use
  Company Number: GB-TEVA-699510ACC

PATIENT
  Age: 39 Year
  Sex: Female
  Weight: 112 kg

DRUGS (6)
  1. QUETIAPINE. [Concomitant]
     Active Substance: QUETIAPINE
  2. BRUFEN [Concomitant]
     Active Substance: IBUPROFEN
  3. ACTAVIS UK MIRTAZAPINE [Suspect]
     Active Substance: MIRTAZAPINE
     Indication: DEPRESSION
     Route: 048
     Dates: start: 20160107, end: 20160908
  4. DULOXETINE. [Concomitant]
     Active Substance: DULOXETINE
  5. LYRICA [Concomitant]
     Active Substance: PREGABALIN
  6. ZAPAIN [Concomitant]
     Active Substance: ACETAMINOPHEN\CODEINE PHOSPHATE

REACTIONS (3)
  - Visual acuity reduced [Not Recovered/Not Resolved]
  - Eye pain [Not Recovered/Not Resolved]
  - Withdrawal syndrome [Unknown]
